FAERS Safety Report 26155786 (Version 1)
Quarter: 2025Q4

REPORT INFORMATION
  Report Type: Spontaneous
  Country: US (occurrence: US)
  Receive Date: 20251215
  Receipt Date: 20251215
  Transmission Date: 20260118
  Serious: No
  Sender: ALKEM
  Company Number: None

PATIENT
  Age: 9 Year
  Sex: Female

DRUGS (3)
  1. TACROLIMUS [Suspect]
     Active Substance: TACROLIMUS
     Indication: Vitiligo
     Dosage: UNK, BID (OINTMENT) (TWO WEEKS OF TWICE-DAILY)
     Route: 061
     Dates: start: 202408
  2. HYDROCORTISONE [Concomitant]
     Active Substance: HYDROCORTISONE
     Indication: Vitiligo
     Dosage: UNK, BID (TWO WEEKS OF TWICE-DAILY)
     Route: 061
     Dates: start: 202408
  3. MOMETASONE [Concomitant]
     Active Substance: MOMETASONE
     Indication: Vitiligo
     Dosage: UNK, BID
     Route: 065
     Dates: start: 202408

REACTIONS (1)
  - Blepharal pigmentation [Recovered/Resolved]
